FAERS Safety Report 4838051-5 (Version None)
Quarter: 2005Q4

REPORT INFORMATION
  Report Type: 
  Country: None (occurrence: None)
  Receive Date: 20051123
  Receipt Date: 20051123
  Transmission Date: 20060501
  Serious: Yes (Hospitalization)
  Sender: FDA-Public Use
  Company Number: None

PATIENT
  Age: 77 Year
  Sex: Male
  Weight: 75.3 kg

DRUGS (1)
  1. WARFARIN [Suspect]

REACTIONS (3)
  - DRUG DOSE OMISSION [None]
  - HAEMATURIA [None]
  - TREATMENT NONCOMPLIANCE [None]
